FAERS Safety Report 10787445 (Version 7)
Quarter: 2017Q1

REPORT INFORMATION
  Report Type: Report from Study
  Country: DE (occurrence: DE)
  Receive Date: 20150212
  Receipt Date: 20170319
  Transmission Date: 20170428
  Serious: Yes (Hospitalization, Other)
  Sender: FDA-Public Use
  Company Number: DE-ROCHE-1536730

PATIENT
  Age: 71 Year
  Sex: Female
  Weight: 62 kg

DRUGS (16)
  1. FENISTIL (GERMANY) [Concomitant]
     Indication: PROPHYLAXIS
     Route: 042
     Dates: start: 20150122, end: 20150213
  2. ESOMEPRAZOL [Concomitant]
     Active Substance: ESOMEPRAZOLE
     Indication: PROPHYLAXIS
     Route: 048
     Dates: start: 20150121
  3. CARBOPLATIN. [Suspect]
     Active Substance: CARBOPLATIN
     Indication: BRONCHIAL CARCINOMA
     Dosage: AUC
     Route: 042
     Dates: start: 20150122
  4. NOVAMINSULFON [Concomitant]
     Active Substance: METAMIZOLE
     Route: 065
  5. FUROSEMID [Concomitant]
     Active Substance: FUROSEMIDE
     Indication: PROPHYLAXIS
     Route: 042
     Dates: start: 20150122, end: 20150213
  6. STILNOX [Concomitant]
     Active Substance: ZOLPIDEM TARTRATE
  7. TAVOR (LORAZEPAM) [Concomitant]
     Active Substance: LORAZEPAM
     Route: 065
  8. PACLITAXEL. [Suspect]
     Active Substance: PACLITAXEL
     Indication: BRONCHIAL CARCINOMA
     Route: 042
     Dates: start: 20150122
  9. NOVAMINSULFON [Concomitant]
     Active Substance: METAMIZOLE
     Indication: PAIN
     Route: 048
     Dates: start: 20141229
  10. ZOLPIDEM [Concomitant]
     Active Substance: ZOLPIDEM\ZOLPIDEM TARTRATE
     Indication: SEDATION
     Route: 048
     Dates: start: 20150121
  11. BEVACIZUMAB [Suspect]
     Active Substance: BEVACIZUMAB
     Indication: BRONCHIAL CARCINOMA
     Route: 042
     Dates: start: 20150122
  12. BISOBETA [Concomitant]
     Indication: HYPERTENSION
     Route: 048
  13. BISOBETA [Concomitant]
     Route: 065
  14. ONDANSETRON [Concomitant]
     Active Substance: ONDANSETRON
     Indication: PROPHYLAXIS OF NAUSEA AND VOMITING
     Route: 048
     Dates: start: 20150121
  15. RANITIDIN [Concomitant]
     Active Substance: RANITIDINE HYDROCHLORIDE
     Indication: PROPHYLAXIS
     Route: 042
     Dates: start: 20150122, end: 20150213
  16. EMEND [Concomitant]
     Active Substance: APREPITANT
     Indication: PROPHYLAXIS
     Dosage: AS REQUIRED
     Route: 048
     Dates: start: 20150122, end: 20150213

REACTIONS (2)
  - Hypertension [Unknown]
  - Rectal polyp [Recovered/Resolved]

NARRATIVE: CASE EVENT DATE: 20150202
